FAERS Safety Report 7795744-8 (Version None)
Quarter: 2011Q4

REPORT INFORMATION
  Report Type: 
  Country: None (occurrence: None)
  Receive Date: 20111004
  Receipt Date: 20110929
  Transmission Date: 20120403
  Serious: Yes (Life-Threatening)
  Sender: FDA-Public Use
  Company Number: SE-PFIZER INC-2011232312

PATIENT
  Age: 63 Year
  Sex: Female

DRUGS (6)
  1. OXASCAND [Concomitant]
     Dosage: UNK
  2. OMEPRAZOLE [Concomitant]
     Dosage: UNK
  3. INSULATARD NPH HUMAN [Concomitant]
     Dosage: UNK
  4. SUTENT [Suspect]
     Indication: PANCREATIC CARCINOMA
     Dosage: 37 MG, 1X/DAY
     Route: 048
     Dates: start: 20110629, end: 20110720
  5. SALURES [Concomitant]
     Dosage: UNK
  6. ZOLPIDEM [Concomitant]
     Dosage: UNK

REACTIONS (2)
  - TRANSAMINASES INCREASED [None]
  - PANCYTOPENIA [None]
